FAERS Safety Report 6911881-1 (Version None)
Quarter: 2010Q3

REPORT INFORMATION
  Report Type: 
  Country: None (occurrence: None)
  Receive Date: 20100806
  Receipt Date: 20071010
  Transmission Date: 20110219
  Serious: No
  Sender: FDA-Public Use
  Company Number: US-PFIZER INC-2007085134

PATIENT
  Sex: Male
  Weight: 97.7 kg

DRUGS (2)
  1. DETROL LA [Suspect]
     Dates: start: 20070809
  2. TAMSULOSIN HCL [Concomitant]
     Dates: end: 20070901

REACTIONS (1)
  - RETROGRADE EJACULATION [None]
